FAERS Safety Report 19147775 (Version 2)
Quarter: 2021Q3

REPORT INFORMATION
  Report Type: Spontaneous
  Country: JP (occurrence: JP)
  Receive Date: 20210416
  Receipt Date: 20210917
  Transmission Date: 20211014
  Serious: Yes (Death, Life-Threatening, Hospitalization, Other)
  Sender: FDA-Public Use
  Company Number: JP-ASTRAZENECA-2021A311550

PATIENT
  Age: 67 Year
  Sex: Male
  Weight: 46 kg

DRUGS (5)
  1. ETOPOSIDE. [Concomitant]
     Active Substance: ETOPOSIDE
     Indication: SMALL CELL LUNG CANCER
     Dosage: ON DAY 1, 2, AND 3 OF EACH CYCLE
     Route: 065
     Dates: start: 20210302, end: 20210304
  2. IMFINZI [Suspect]
     Active Substance: DURVALUMAB
     Indication: SMALL CELL LUNG CANCER
     Route: 041
     Dates: start: 20210302, end: 20210302
  3. CISPLATIN. [Concomitant]
     Active Substance: CISPLATIN
     Indication: SMALL CELL LUNG CANCER
     Route: 065
     Dates: start: 20210302, end: 20210302
  4. HERBAL NOS [Concomitant]
     Active Substance: HERBALS
     Route: 048
     Dates: end: 20210328
  5. NEXIUM [Concomitant]
     Active Substance: ESOMEPRAZOLE MAGNESIUM
     Route: 048
     Dates: end: 20210328

REACTIONS (6)
  - Respiratory failure [Fatal]
  - White blood cell count decreased [Unknown]
  - Hepatic enzyme increased [Unknown]
  - Interstitial lung disease [Fatal]
  - Cardio-respiratory arrest [Unknown]
  - Hypoxia [Unknown]

NARRATIVE: CASE EVENT DATE: 20210316
